FAERS Safety Report 18341057 (Version 6)
Quarter: 2021Q4

REPORT INFORMATION
  Report Type: Spontaneous
  Country: BE (occurrence: BE)
  Receive Date: 20201003
  Receipt Date: 20211115
  Transmission Date: 20220303
  Serious: Yes (Other)
  Sender: FDA-Public Use
  Company Number: BE-VERTEX PHARMACEUTICALS-2020-017702

PATIENT
  Age: 58 Year
  Sex: Female

DRUGS (21)
  1. AZITHROMYCIN [Suspect]
     Active Substance: AZITHROMYCIN
     Indication: Product used for unknown indication
     Dosage: 500 MILLIGRAM, 3X1 WEEK
     Route: 065
     Dates: end: 2020
  2. ELEXACAFTOR\IVACAFTOR\TEZACAFTOR [Suspect]
     Active Substance: ELEXACAFTOR\IVACAFTOR\TEZACAFTOR
     Indication: Cystic fibrosis
     Dosage: 1 DOSAGE FORM, ONCE A DAY (100MG ELEXACAFTOR/ 50MG TEZACAFTOR/ 75MG IVACAFTOR, QD )
     Route: 065
     Dates: start: 20200731
  3. ELEXACAFTOR\IVACAFTOR\TEZACAFTOR [Suspect]
     Active Substance: ELEXACAFTOR\IVACAFTOR\TEZACAFTOR
     Dosage: 1 TABLET OF MORNING DOSE ONE DAY ALTERNATIVE WITH 2 TABLETS OF MORNING DOSE
     Route: 048
     Dates: start: 20200831
  4. ELEXACAFTOR\IVACAFTOR\TEZACAFTOR [Suspect]
     Active Substance: ELEXACAFTOR\IVACAFTOR\TEZACAFTOR
     Dosage: 2 MORNING DOSE
     Route: 048
     Dates: start: 20210104
  5. KALYDECO [Suspect]
     Active Substance: IVACAFTOR
     Indication: Cystic fibrosis
     Dosage: 1 DOSAGE FORM, ONCE A DAY(150MG IVACAFTOR, QD)
     Route: 048
     Dates: start: 20200731, end: 20200824
  6. KALYDECO [Suspect]
     Active Substance: IVACAFTOR
     Dosage: UNK, HALF DOSAGE REGIMEN
     Route: 048
     Dates: start: 20200831
  7. KALYDECO [Suspect]
     Active Substance: IVACAFTOR
     Dosage: ONE EVENING TABLET
     Route: 048
     Dates: start: 20210104
  8. KALYDECO [Suspect]
     Active Substance: IVACAFTOR
     Dosage: 150 MILLIGRAM, ONCE A DAY
     Route: 048
     Dates: start: 20200731
  9. TRIKAFTA [Suspect]
     Active Substance: ELEXACAFTOR\IVACAFTOR\TEZACAFTOR
     Indication: Product used for unknown indication
     Dosage: 1 DOSAGE FORM, ONCE A DAY
     Route: 048
     Dates: start: 20200831, end: 202101
  10. TRIKAFTA [Suspect]
     Active Substance: ELEXACAFTOR\IVACAFTOR\TEZACAFTOR
     Indication: Cystic fibrosis
     Dosage: 2 DOSAGE FORM, EVERY MORNING
     Route: 048
     Dates: start: 20210104
  11. TRIKAFTA [Suspect]
     Active Substance: ELEXACAFTOR\IVACAFTOR\TEZACAFTOR
     Dosage: 1 DOSAGE FORM, ONCE A DAY
     Route: 048
     Dates: start: 20200731, end: 20200824
  12. ASPIRIN [Concomitant]
     Active Substance: ASPIRIN
     Indication: Thrombosis prophylaxis
     Dosage: 80 MILLIGRAM, ONCE A DAY
     Route: 048
     Dates: start: 20190207
  13. CREON [Concomitant]
     Active Substance: PANCRELIPASE AMYLASE\PANCRELIPASE LIPASE\PANCRELIPASE PROTEASE
     Indication: Pancreatic failure
     Dosage: 10-12 TABLETS/ DAY
     Route: 048
     Dates: start: 1999
  14. Colecalciferol d3 [Concomitant]
     Indication: Pancreatic failure
     Dosage: UNK
     Route: 048
     Dates: start: 20190523
  15. DEXTROMETHORPHAN HYDROBROMIDE [Concomitant]
     Active Substance: DEXTROMETHORPHAN HYDROBROMIDE
     Indication: Product used for unknown indication
     Dosage: UNK
     Route: 065
  16. FENOTEROL HYDROBROMIDE [Concomitant]
     Active Substance: FENOTEROL HYDROBROMIDE
     Indication: Bronchial hyperreactivity
     Dosage: 4 MILLILITER, AS NECESSARY
     Route: 065
     Dates: start: 20170517
  17. FENOTEROL [Concomitant]
     Active Substance: FENOTEROL
     Indication: Product used for unknown indication
     Dosage: UNK
     Route: 065
  18. NOVORAPID [Concomitant]
     Active Substance: INSULIN ASPART
     Indication: Cystic fibrosis related diabetes
     Dosage: 1 DOSAGE FORM, 3 TIMES A DAY
     Route: 058
     Dates: start: 201709
  19. Pantomed [Concomitant]
     Indication: Reflux gastritis
     Dosage: 40 MILLIGRAM, ONCE A DAY,
     Route: 048
     Dates: start: 20110908
  20. PULMOZYME [Concomitant]
     Active Substance: DORNASE ALFA
     Indication: Cystic fibrosis lung
     Dosage: 2.5 MILLILITER, ONCE A DAY,
     Route: 065
     Dates: start: 20040325
  21. VISTA D3 [Concomitant]
     Indication: Pancreatic failure
     Dosage: UNK, 1/ MONTH
     Route: 048
     Dates: start: 20190523

REACTIONS (6)
  - Drug-induced liver injury [Recovered/Resolved]
  - Blood lactate dehydrogenase increased [Recovering/Resolving]
  - Aspartate aminotransferase increased [Recovering/Resolving]
  - Alanine aminotransferase increased [Recovering/Resolving]
  - Gamma-glutamyltransferase increased [Recovering/Resolving]
  - Blood alkaline phosphatase increased [Recovering/Resolving]

NARRATIVE: CASE EVENT DATE: 20200801
